FAERS Safety Report 6867492-X (Version None)
Quarter: 2010Q3

REPORT INFORMATION
  Report Type: 
  Country: None (occurrence: None)
  Receive Date: 20100722
  Receipt Date: 20100715
  Transmission Date: 20110219
  Serious: Yes (Other)
  Sender: FDA-Public Use
  Company Number: CA-ABBOTT-10P-028-0657731-00

PATIENT
  Age: 3 Year
  Sex: Male

DRUGS (2)
  1. VALPROIC ACID SYRUP [Suspect]
     Indication: EPILEPSY
     Dosage: 3 IN 1 D, 50 MG/ML
     Route: 048
     Dates: start: 20100423
  2. VALPROIC ACID SYRUP [Suspect]
     Dosage: 3 IN 1 D, 50 MG/ML
     Route: 048

REACTIONS (1)
  - DYSPHEMIA [None]
